FAERS Safety Report 5325141-6 (Version None)
Quarter: 2007Q2

REPORT INFORMATION
  Report Type: 
  Country: None (occurrence: None)
  Receive Date: 20070511
  Receipt Date: 20070511
  Transmission Date: 20071010
  Serious: Yes (Hospitalization)
  Sender: FDA-Public Use
  Company Number: None

PATIENT
  Sex: Female
  Weight: 103.8 kg

DRUGS (2)
  1. CISPLATIN [Suspect]
     Dosage: 100 MG
  2. TOPOTECAN [Concomitant]

REACTIONS (19)
  - ABSCESS DRAINAGE [None]
  - ANAEMIA [None]
  - CHILLS [None]
  - COUGH [None]
  - DEEP VEIN THROMBOSIS [None]
  - DYSPNOEA EXERTIONAL [None]
  - INTERNATIONAL NORMALISED RATIO INCREASED [None]
  - LEFT VENTRICLE OUTFLOW TRACT OBSTRUCTION [None]
  - LEFT VENTRICULAR HYPERTROPHY [None]
  - NAUSEA [None]
  - NEUTROPENIA [None]
  - POLLAKIURIA [None]
  - REFUSAL OF TREATMENT BY PATIENT [None]
  - SUBCUTANEOUS ABSCESS [None]
  - TROPONIN INCREASED [None]
  - URINE ODOUR ABNORMAL [None]
  - VAGINAL DISCHARGE [None]
  - VOMITING [None]
  - WHEEZING [None]
